FAERS Safety Report 4365967-9 (Version None)
Quarter: 2004Q2

REPORT INFORMATION
  Report Type: 
  Country: None (occurrence: None)
  Receive Date: 20040520
  Receipt Date: 20040511
  Transmission Date: 20050107
  Serious: Yes (Other)
  Sender: FDA-Public Use
  Company Number: 2004212582DE

PATIENT
  Sex: Female

DRUGS (2)
  1. BEXTRA [Suspect]
     Dosage: ORAL
     Route: 048
  2. ROFECOXIB [Suspect]
     Dosage: ORAL
     Route: 048

REACTIONS (2)
  - ARRHYTHMIA [None]
  - DRUG INTERACTION [None]
